FAERS Safety Report 9144926 (Version 1)
Quarter: 2013Q1

REPORT INFORMATION
  Report Type: Spontaneous
  Country: BR (occurrence: BR)
  Receive Date: 20130307
  Receipt Date: 20130307
  Transmission Date: 20140127
  Serious: Yes (Other)
  Sender: FDA-Public Use
  Company Number: BR-BIOGENIDEC-2012BI049318

PATIENT
  Sex: Female
  Weight: 74 kg

DRUGS (6)
  1. AVONEX [Suspect]
     Indication: PRODUCT USED FOR UNKNOWN INDICATION
     Route: 030
     Dates: start: 201204, end: 201206
  2. AVONEX [Suspect]
     Indication: PRODUCT USED FOR UNKNOWN INDICATION
     Route: 030
     Dates: start: 20130222
  3. FLUOXETINE [Concomitant]
     Indication: DEPRESSION
     Route: 048
     Dates: start: 201204, end: 20120624
  4. CLONAZEPAM [Concomitant]
     Indication: ANXIETY
     Route: 048
     Dates: start: 201204, end: 20120624
  5. PASALIX [Concomitant]
     Indication: PREGNANCY
     Route: 048
     Dates: start: 20120625
  6. VITAMIN [Concomitant]
     Indication: PREGNANCY
     Route: 048

REACTIONS (1)
  - Caesarean section [Recovered/Resolved]
